FAERS Safety Report 5110001-6 (Version None)
Quarter: 2006Q3

REPORT INFORMATION
  Report Type: 
  Country: None (occurrence: None)
  Receive Date: 20060918
  Receipt Date: 20060918
  Transmission Date: 20061208
  Serious: No
  Sender: FDA-Public Use
  Company Number: None

PATIENT
  Age: 56 Year
  Sex: Female
  Weight: 47.1741 kg

DRUGS (1)
  1. GENERIC ESTRADIOL PATCH [Suspect]
     Indication: HORMONE THERAPY
     Dosage: 0.25MG WEEKLY DERMAL PATCH
     Route: 062
     Dates: start: 20050527, end: 20050801

REACTIONS (3)
  - APPLICATION SITE DERMATITIS [None]
  - MIGRAINE [None]
  - PHARMACEUTICAL PRODUCT COMPLAINT [None]
